FAERS Safety Report 14739761 (Version 2)
Quarter: 2018Q2

REPORT INFORMATION
  Report Type: Spontaneous
  Country: US (occurrence: US)
  Receive Date: 20180410
  Receipt Date: 20180530
  Transmission Date: 20180711
  Serious: Yes (Hospitalization)
  Sender: FDA-Public Use
  Company Number: US-PFIZER INC-2018141740

PATIENT
  Age: 73 Year
  Sex: Male

DRUGS (10)
  1. ASPIRIN. [Concomitant]
     Active Substance: ASPIRIN
     Indication: ANTICOAGULANT THERAPY
     Dosage: 81 MG, 1X/DAY (81MG 1 TABLET BY MOUTH ONCE A DAY)
     Route: 048
  2. SUTENT [Suspect]
     Active Substance: SUNITINIB MALATE
     Indication: GASTROINTESTINAL STROMAL TUMOUR
     Dosage: 50 MG, CYCLIC (TAKING THE MEDICATION 2 WEEKS ON AND 1 WEEK OFF, FOR 3 MONTHS)
  3. METOPROLOL. [Concomitant]
     Active Substance: METOPROLOL
     Indication: BLOOD PRESSURE ABNORMAL
     Dosage: 25 MG, 2X/DAY (25MG 1 TABLET BY MOUTH TWICE A DAY)
     Route: 048
  4. SUTENT [Suspect]
     Active Substance: SUNITINIB MALATE
     Indication: HEPATIC CANCER
     Dosage: 50 MG, CYCLIC (50MG 1 CAPSULE BY MOUTH DAILY 4 WEEKS ON 2 WEEKS OFF)
     Route: 048
     Dates: start: 201610
  5. SUTENT [Suspect]
     Active Substance: SUNITINIB MALATE
     Dosage: 50 MG, CYCLIC (SWITCHED BACK TO 4 WEEKS ON AND 2 WEEKS OFF)
     Dates: start: 20180213
  6. AMLODIPINE [Concomitant]
     Active Substance: AMLODIPINE BESYLATE
     Indication: BLOOD PRESSURE ABNORMAL
     Dosage: 10 MG, 1X/DAY (10MG 1 TABLET MOUTH ONCE A DAY)
     Route: 048
  7. METFORMIN [Concomitant]
     Active Substance: METFORMIN HYDROCHLORIDE
     Indication: DIABETES MELLITUS
     Dosage: 1000 MG, 2X/DAY (1000MG 1 TABLET BY MOUTH TWICE A DAY)
     Route: 048
  8. LOVASTATIN. [Concomitant]
     Active Substance: LOVASTATIN
     Indication: BLOOD CHOLESTEROL ABNORMAL
     Dosage: 40 MG, 1X/DAY (40MG 1 TABLET BY MOUTH ONCE A DAY)
     Route: 048
  9. LOSARTAN. [Concomitant]
     Active Substance: LOSARTAN
     Indication: BLOOD PRESSURE ABNORMAL
     Dosage: 50 MG, 2X/DAY (50MG 1 TABLET BY MOUTH TWICE A DAY)
     Route: 048
  10. OMEPRAZOLE. [Concomitant]
     Active Substance: OMEPRAZOLE
     Indication: GASTRIC DISORDER
     Dosage: 20 MG, 1X/DAY (20MG 1 CAPSULE BY MOUTH ONCE A DAY)
     Route: 048

REACTIONS (12)
  - Drug ineffective [Unknown]
  - Dyspnoea [Not Recovered/Not Resolved]
  - Arthralgia [Not Recovered/Not Resolved]
  - Pain in extremity [Not Recovered/Not Resolved]
  - Neoplasm progression [Unknown]
  - Peripheral swelling [Not Recovered/Not Resolved]
  - Diarrhoea [Not Recovered/Not Resolved]
  - Weight increased [Unknown]
  - Lung hernia [Unknown]
  - Pruritus [Not Recovered/Not Resolved]
  - Pulmonary oedema [Unknown]
  - Nausea [Unknown]

NARRATIVE: CASE EVENT DATE: 201610
